FAERS Safety Report 5851929-9 (Version None)
Quarter: 2008Q3

REPORT INFORMATION
  Report Type: 
  Country: None (occurrence: None)
  Receive Date: 20080820
  Receipt Date: 20080808
  Transmission Date: 20090109
  Serious: Yes (Hospitalization, Other)
  Sender: FDA-Public Use
  Company Number: JP-PFIZER INC-2007026124

PATIENT
  Age: 73 Year
  Sex: Male

DRUGS (9)
  1. DETRUSITOL SR [Suspect]
     Indication: HYPERTONIC BLADDER
     Dosage: DAILY DOSE:4MG
     Route: 048
     Dates: start: 20060216, end: 20060222
  2. PAXIL [Interacting]
     Indication: DEPRESSION
     Dosage: DAILY DOSE:40MG
     Route: 048
  3. TOLEDOMIN [Interacting]
     Indication: DEPRESSION
     Route: 048
  4. NORVASC [Concomitant]
     Route: 048
  5. TENORMIN [Concomitant]
     Route: 048
  6. TANATRIL ^ALGOL^ [Concomitant]
     Route: 048
  7. MAG-LAX [Concomitant]
     Route: 048
  8. OPALMON [Concomitant]
     Route: 048
  9. FLIVAS [Concomitant]
     Route: 048

REACTIONS (3)
  - DEPRESSION [None]
  - DRUG INTERACTION [None]
  - URINARY RETENTION [None]
